FAERS Safety Report 11445814 (Version 1)
Quarter: 2015Q3

REPORT INFORMATION
  Report Type: Report from Study
  Country: ES (occurrence: ES)
  Receive Date: 20150902
  Receipt Date: 20150902
  Transmission Date: 20151125
  Serious: Yes (Hospitalization)
  Sender: FDA-Public Use
  Company Number: ES-SA-2015SA128808

PATIENT
  Age: 68 Year
  Sex: Female

DRUGS (7)
  1. SEGURIL [Suspect]
     Active Substance: FUROSEMIDE
     Indication: CARDIAC FAILURE CONGESTIVE
     Dosage: 1-0-0
     Route: 048
     Dates: start: 20131030, end: 20140721
  2. CARVEDILOL. [Concomitant]
     Active Substance: CARVEDILOL
     Indication: CARDIAC FAILURE CONGESTIVE
     Dosage: 1-0-0
     Route: 048
     Dates: start: 20131030, end: 20140721
  3. AMLODIPINE [Concomitant]
     Active Substance: AMLODIPINE BESYLATE
     Indication: HYPERTENSION
     Dosage: 1-0-0
     Route: 048
     Dates: start: 2012
  4. SINTROM [Concomitant]
     Active Substance: ACENOCOUMAROL
     Indication: ATRIAL FIBRILLATION
     Dosage: SP?STRENGTH: 4 MG
     Route: 048
     Dates: start: 2012
  5. VALSARTAN. [Concomitant]
     Active Substance: VALSARTAN
     Indication: HYPERTENSION
     Route: 048
     Dates: start: 2012
  6. ALDACTONE [Interacting]
     Active Substance: SPIRONOLACTONE
     Indication: CARDIAC FAILURE CONGESTIVE
     Dosage: 1-0-0
     Route: 048
     Dates: start: 20130313, end: 20140721
  7. BOI-KCOMPRIMIDOS EFERVESCENTES [Interacting]
     Active Substance: ASPARTIC ACID\POTASSIUM ASCORBATE
     Indication: HYPOKALAEMIA
     Dosage: DOSE: 1-1-1 (UNITS NOT REPORTED)
     Route: 048
     Dates: start: 20140501, end: 20140721

REACTIONS (4)
  - Hyponatraemia [Recovered/Resolved]
  - Drug interaction [Unknown]
  - Hyperkalaemia [Recovered/Resolved]
  - Ileus paralytic [Recovered/Resolved]

NARRATIVE: CASE EVENT DATE: 20140721
